FAERS Safety Report 20608335 (Version 1)
Quarter: 2022Q1

REPORT INFORMATION
  Report Type: Spontaneous
  Country: US (occurrence: None)
  Receive Date: 20220317
  Receipt Date: 20220317
  Transmission Date: 20220423
  Serious: Yes (Life-Threatening)
  Sender: FDA-Public Use
  Company Number: None

PATIENT
  Age: 27 Year
  Sex: Male
  Weight: 85.5 kg

DRUGS (3)
  1. AMPHETAMINE [Suspect]
     Active Substance: AMPHETAMINE
     Indication: Attention deficit hyperactivity disorder
     Route: 048
     Dates: start: 20211116, end: 20211230
  2. DEXTROAMPHET SACCHARAT, AMPHET ASPARTATE, DEXTROAMPHET SULFATE AND AMP [Suspect]
     Active Substance: AMPHETAMINE ASPARTATE\AMPHETAMINE SULFATE\DEXTROAMPHETAMINE SACCHARATE\DEXTROAMPHETAMINE SULFATE
     Indication: Attention deficit hyperactivity disorder
     Dosage: FREQUENCY : EVERY DAY BEFORE NOON;?
     Route: 048
     Dates: end: 20220211
  3. ADDERALL [Concomitant]

REACTIONS (11)
  - Insurance issue [None]
  - Product substitution issue [None]
  - Therapeutic product effect decreased [None]
  - Therapeutic product effect variable [None]
  - Dizziness [None]
  - Headache [None]
  - Nausea [None]
  - Confusional state [None]
  - Product quality issue [None]
  - Product supply issue [None]
  - Cardiac disorder [None]

NARRATIVE: CASE EVENT DATE: 20211230
